FAERS Safety Report 17710659 (Version 1)
Quarter: 2020Q2

REPORT INFORMATION
  Report Type: Spontaneous
  Country: US (occurrence: US)
  Receive Date: 20200424
  Receipt Date: 20200424
  Transmission Date: 20200714
  Serious: No
  Sender: FDA-Public Use
  Company Number: None

PATIENT
  Age: 75 Year
  Sex: Female

DRUGS (1)
  1. HUMIRA [Suspect]
     Active Substance: ADALIMUMAB
     Indication: PSORIATIC ARTHROPATHY
     Dosage: ?          OTHER FREQUENCY:EVERY14DAYS ;?
     Dates: start: 20180412

REACTIONS (4)
  - Headache [None]
  - Product storage error [None]
  - Spinal pain [None]
  - Psoriasis [None]

NARRATIVE: CASE EVENT DATE: 20200320
